FAERS Safety Report 9048662 (Version 1)
Quarter: 2013Q1

REPORT INFORMATION
  Report Type: Spontaneous
  Country: US (occurrence: None)
  Receive Date: 20130130
  Receipt Date: 20130130
  Transmission Date: 20140127
  Serious: Yes (Hospitalization)
  Sender: FDA-Public Use
  Company Number: None

PATIENT
  Age: 76 Year
  Sex: Male
  Weight: 97.5 kg

DRUGS (2)
  1. CABOZANTINIB [Suspect]
     Indication: PROSTATE CANCER
     Dosage: ONCE DAILY
     Route: 048
     Dates: start: 20121220, end: 20130117
  2. CABOZANTINIB [Suspect]
     Dosage: ONCE DAILY
     Route: 048
     Dates: start: 20121220, end: 20130117

REACTIONS (10)
  - Hypernatraemia [None]
  - Anaemia [None]
  - Deep vein thrombosis [None]
  - Pleural effusion [None]
  - Asthenia [None]
  - Local swelling [None]
  - Erythema [None]
  - Hypoaesthesia [None]
  - Muscular weakness [None]
  - Dyspnoea [None]
